FAERS Safety Report 7442759-5 (Version None)
Quarter: 2011Q2

REPORT INFORMATION
  Report Type: 
  Country: None (occurrence: None)
  Receive Date: 20110428
  Receipt Date: 20110415
  Transmission Date: 20111010
  Serious: Yes (Other)
  Sender: FDA-Public Use
  Company Number: CA-JNJFOC-20110408005

PATIENT
  Sex: Female
  Weight: 54.2 kg

DRUGS (5)
  1. SERTRALINE [Concomitant]
  2. MESASAL [Concomitant]
  3. REMICADE [Suspect]
     Indication: CROHN'S DISEASE
     Route: 042
  4. IMURAN [Concomitant]
  5. RABEPRAZOLE SODIUM [Concomitant]

REACTIONS (5)
  - BLOOD IRON DECREASED [None]
  - ABDOMINAL DISTENSION [None]
  - DIARRHOEA [None]
  - MENORRHAGIA [None]
  - MUSCLE SPASMS [None]
